FAERS Safety Report 4659939-4 (Version None)
Quarter: 2005Q2

REPORT INFORMATION
  Report Type: 
  Country: None (occurrence: None)
  Receive Date: 20050419
  Receipt Date: 20041228
  Transmission Date: 20051028
  Serious: Yes (Disabling, Other)
  Sender: FDA-Public Use
  Company Number: 16101

PATIENT
  Age: 44 Year
  Sex: Female
  Weight: 59 kg

DRUGS (5)
  1. ADRIAMYCIN PFS [Suspect]
     Indication: BREAST CANCER
     Dosage: 60MG/M2 IV Q2WEEKS
     Route: 042
     Dates: start: 20041203
  2. ADRIAMYCIN PFS [Suspect]
     Indication: BREAST CANCER
     Dosage: 60MG/M2 IV Q2WEEKS
     Route: 042
     Dates: start: 20041217
  3. ADRIAMYCIN PFS [Suspect]
     Indication: BREAST CANCER
     Dosage: 60MG/M2 IV Q2WEEKS
     Route: 042
     Dates: start: 20041230
  4. FILGRASTIN [Concomitant]
  5. ANZEMET [Concomitant]

REACTIONS (1)
  - LOCALISED INFECTION [None]
